FAERS Safety Report 4906950-1 (Version None)
Quarter: 2006Q1

REPORT INFORMATION
  Report Type: 
  Country: None (occurrence: None)
  Receive Date: 20060209
  Receipt Date: 20051212
  Transmission Date: 20060701
  Serious: Yes (Hospitalization)
  Sender: FDA-Public Use
  Company Number: US-GILEAD-2005-0009019

PATIENT
  Age: 35 Year
  Sex: Male
  Weight: 68 kg

DRUGS (22)
  1. BLINDED EMTRICITABINE/TENOFOVIR DF OR PLACEBO [Suspect]
     Indication: HIV INFECTION
     Dosage: 200 MG/300 MG
     Route: 048
     Dates: start: 20051025, end: 20051125
  2. BLINDED ABACAVIR/LAMIVUDINE OR PLACEBO [Suspect]
     Indication: HIV INFECTION
     Route: 048
     Dates: start: 20051025, end: 20051125
  3. BLINDED ABACAVIR/LAMIVUDINE VS. PLACEBO [Suspect]
     Indication: HIV INFECTION
     Route: 048
     Dates: start: 20051025, end: 20051125
  4. ATAZANAVIR [Suspect]
     Indication: HIV INFECTION
     Route: 048
     Dates: start: 20051025, end: 20051125
  5. RITONAVIR [Suspect]
     Indication: HIV INFECTION
     Route: 048
     Dates: start: 20051025, end: 20051125
  6. LUNESTA [Concomitant]
     Dates: start: 20051119, end: 20051120
  7. MOTRIN [Concomitant]
     Route: 048
     Dates: start: 20051103
  8. ATIVAN [Concomitant]
     Dates: start: 20051011, end: 20051025
  9. ZITHROMAX [Concomitant]
     Route: 048
     Dates: start: 20050727
  10. BACTRIM DS [Concomitant]
     Route: 048
     Dates: start: 20051126
  11. BACTRIM DS [Concomitant]
     Route: 048
     Dates: start: 20050812
  12. BACTRIM DS [Concomitant]
     Route: 048
     Dates: start: 20050727, end: 20050811
  13. FLUCONAZOLE [Concomitant]
     Route: 048
     Dates: start: 20051003
  14. FLUCONAZOLE [Concomitant]
     Dates: start: 20050816, end: 20050830
  15. FAMVIR [Concomitant]
     Dates: start: 20050721
  16. ATARAX [Concomitant]
     Dates: start: 20050912
  17. NIZORAL [Concomitant]
     Route: 061
     Dates: start: 20050912
  18. VITAMIN B-12 [Concomitant]
     Dates: start: 19880101
  19. MULTI-VITAMIN [Concomitant]
     Route: 048
     Dates: start: 20050727
  20. ASCORBIC ACID [Concomitant]
     Route: 048
     Dates: start: 20050727
  21. BACTROBAN [Concomitant]
     Route: 061
     Dates: start: 20050912
  22. CULTIVATE [Concomitant]
     Route: 061
     Dates: start: 20050912

REACTIONS (10)
  - CHILLS [None]
  - DEHYDRATION [None]
  - DRUG HYPERSENSITIVITY [None]
  - DYSURIA [None]
  - HYPERSENSITIVITY [None]
  - INFREQUENT BOWEL MOVEMENTS [None]
  - NAUSEA [None]
  - ORAL INTAKE REDUCED [None]
  - PYREXIA [None]
  - SINUS TACHYCARDIA [None]
